FAERS Safety Report 16614032 (Version 1)
Quarter: 2019Q3

REPORT INFORMATION
  Report Type: Spontaneous
  Country: JP (occurrence: JP)
  Receive Date: 20190723
  Receipt Date: 20190723
  Transmission Date: 20191004
  Serious: Yes (Other)
  Sender: FDA-Public Use
  Company Number: JP-SAKK-2019SA193228AA

PATIENT
  Age: 63 Year
  Sex: Female

DRUGS (2)
  1. METFORMIN HYDROCHLORIDE. [Suspect]
     Active Substance: METFORMIN HYDROCHLORIDE
     Indication: DIABETES MELLITUS MANAGEMENT
     Route: 065
  2. TAXOTERE [Suspect]
     Active Substance: DOCETAXEL
     Indication: BREAST CANCER
     Dosage: DAILY DOSE: 75 MG/M2
     Route: 041

REACTIONS (7)
  - Lactic acidosis [Unknown]
  - Diarrhoea [Unknown]
  - Dehydration [Unknown]
  - Respiration abnormal [Unknown]
  - Acute kidney injury [Unknown]
  - Drug level increased [Unknown]
  - Hypophagia [Unknown]
